FAERS Safety Report 15366918 (Version 1)
Quarter: 2018Q3

REPORT INFORMATION
  Report Type: Spontaneous
  Country: NL (occurrence: NL)
  Receive Date: 20180910
  Receipt Date: 20180910
  Transmission Date: 20181010
  Serious: Yes (Disabling)
  Sender: FDA-Public Use
  Company Number: NL-PFIZER INC-2018359638

PATIENT
  Age: 67 Year
  Sex: Male
  Weight: 73 kg

DRUGS (1)
  1. TRANEXAMIC ACID. [Suspect]
     Active Substance: TRANEXAMIC ACID
     Indication: ANEURYSM RUPTURED
     Dosage: 1000 MG, UNK
     Route: 042
     Dates: start: 20180802

REACTIONS (1)
  - Peripheral artery thrombosis [Unknown]

NARRATIVE: CASE EVENT DATE: 20180802
